FAERS Safety Report 8462452-X (Version None)
Quarter: 2012Q2

REPORT INFORMATION
  Report Type: 
  Country: None (occurrence: None)
  Receive Date: 20120625
  Receipt Date: 20120614
  Transmission Date: 20120825
  Serious: Yes (Hospitalization, Other)
  Sender: FDA-Public Use
  Company Number: US-ASTRAZENECA-2012SE03653

PATIENT
  Age: 60 Year
  Sex: Female

DRUGS (13)
  1. SEROQUEL [Suspect]
     Route: 048
  2. SEROQUEL [Suspect]
     Route: 048
     Dates: start: 20120116
  3. SEROQUEL [Suspect]
     Route: 048
  4. SEROQUEL [Suspect]
     Indication: SLEEP DISORDER
     Dosage: 75 MG (25 MG AND 50 MG)
     Route: 048
  5. SEROQUEL [Suspect]
     Route: 048
  6. SEROQUEL [Suspect]
     Route: 048
  7. SEROQUEL [Suspect]
     Route: 048
  8. SEROQUEL [Suspect]
     Indication: AGORAPHOBIA
     Dosage: 75 MG (25 MG AND 50 MG)
     Route: 048
  9. SEROQUEL [Suspect]
     Route: 048
  10. SEROQUEL [Suspect]
     Indication: BIPOLAR DISORDER
     Dosage: 75 MG (25 MG AND 50 MG)
     Route: 048
  11. SEROQUEL [Suspect]
     Route: 048
     Dates: start: 20120116
  12. COUMADIN [Concomitant]
  13. SEROQUEL [Suspect]
     Route: 048
     Dates: start: 20120116

REACTIONS (3)
  - OFF LABEL USE [None]
  - LUNG CARCINOMA CELL TYPE UNSPECIFIED STAGE III [None]
  - CARDIAC FLUTTER [None]
